FAERS Safety Report 13270424 (Version 1)
Quarter: 2017Q1

REPORT INFORMATION
  Report Type: Report from Study
  Country: US (occurrence: US)
  Receive Date: 20170224
  Receipt Date: 20170224
  Transmission Date: 20170428
  Serious: Yes (Other)
  Sender: FDA-Public Use
  Company Number: US-ACTELION-A-NJ2017-150054

PATIENT
  Age: 67 Year
  Sex: Male

DRUGS (2)
  1. UPTRAVI [Suspect]
     Active Substance: SELEXIPAG
     Indication: PULMONARY ARTERIAL HYPERTENSION
     Dosage: 400 MCG, BID
     Route: 048
     Dates: start: 20170202, end: 20170213
  2. UPTRAVI [Suspect]
     Active Substance: SELEXIPAG
     Dosage: 400 MCG AM / 200 MCG PM
     Route: 048
     Dates: start: 20170214

REACTIONS (3)
  - Vomiting [Unknown]
  - Blood pressure increased [Unknown]
  - Nausea [Unknown]

NARRATIVE: CASE EVENT DATE: 20170202
